FAERS Safety Report 6013816-5 (Version None)
Quarter: 2008Q4

REPORT INFORMATION
  Report Type: 
  Country: None (occurrence: None)
  Receive Date: 20081219
  Receipt Date: 20081209
  Transmission Date: 20090506
  Serious: Yes (Other)
  Sender: FDA-Public Use
  Company Number: US-PFIZER INC-2008154314

PATIENT
  Sex: Female
  Weight: 54.422 kg

DRUGS (8)
  1. LYRICA [Suspect]
     Indication: PAIN
  2. MINOCYCLINE HCL [Suspect]
     Indication: BLISTER
  3. MINOCYCLINE HCL [Suspect]
     Indication: CYST
  4. MECLOZINE HYDROCHLORIDE [Concomitant]
     Dosage: UNK
  5. CELEBREX [Concomitant]
     Dosage: UNK
  6. METHADONE HYDROCHLORIDE [Concomitant]
     Dosage: UNK
  7. PROVIGIL [Concomitant]
     Dosage: UNK
  8. TOPAMAX [Concomitant]
     Dosage: UNK

REACTIONS (7)
  - BLISTER [None]
  - CYST [None]
  - OEDEMA PERIPHERAL [None]
  - RASH [None]
  - RENAL DISORDER [None]
  - SKIN EXFOLIATION [None]
  - SPINAL NERVE STIMULATOR IMPLANTATION [None]
